FAERS Safety Report 5016066-4 (Version None)
Quarter: 2006Q2

REPORT INFORMATION
  Report Type: 
  Country: None (occurrence: None)
  Receive Date: 20060414
  Receipt Date: 20060310
  Transmission Date: 20061013
  Serious: No
  Sender: FDA-Public Use
  Company Number: 2006SP001191

PATIENT
  Age: 63 Year
  Sex: Female
  Weight: 78.0187 kg

DRUGS (2)
  1. LUNESTA [Suspect]
     Indication: STRESS
     Dosage: 2 MG; HS; ORAL
     Route: 048
     Dates: start: 20060309, end: 20060310
  2. MULTIVITAMIN [Concomitant]

REACTIONS (2)
  - ANXIETY [None]
  - TREMOR [None]
